FAERS Safety Report 9380917 (Version 1)
Quarter: 2013Q3

REPORT INFORMATION
  Report Type: Spontaneous
  Country: GR (occurrence: GR)
  Receive Date: 20130703
  Receipt Date: 20130703
  Transmission Date: 20140515
  Serious: Yes (Other)
  Sender: FDA-Public Use
  Company Number: GR-ROCHE-1244087

PATIENT
  Age: 70 Year
  Sex: Male

DRUGS (6)
  1. AVASTIN [Suspect]
     Indication: LUNG ADENOCARCINOMA
     Route: 065
  2. AVASTIN [Suspect]
     Indication: METASTASES TO LIVER
  3. CARBOPLATIN [Concomitant]
     Indication: LUNG ADENOCARCINOMA
  4. CARBOPLATIN [Concomitant]
     Indication: METASTASES TO LIVER
  5. ALIMTA [Concomitant]
     Indication: LUNG ADENOCARCINOMA
  6. ALIMTA [Concomitant]
     Indication: METASTASES TO LIVER

REACTIONS (1)
  - Disease progression [Unknown]
